FAERS Safety Report 23350708 (Version 6)
Quarter: 2025Q1

REPORT INFORMATION
  Report Type: Report from Study
  Country: UY (occurrence: UY)
  Receive Date: 20231229
  Receipt Date: 20250326
  Transmission Date: 20250409
  Serious: Yes (Hospitalization, Other)
  Sender: JOHNSON AND JOHNSON
  Company Number: UY-JNJFOC-20231048551

PATIENT
  Age: 77 Year
  Sex: Female
  Weight: 90 kg

DRUGS (2)
  1. SIMPONI [Suspect]
     Active Substance: GOLIMUMAB
     Indication: Rheumatoid arthritis
     Route: 058
     Dates: start: 20230226
  2. SIMPONI [Suspect]
     Active Substance: GOLIMUMAB
     Route: 058

REACTIONS (11)
  - Accident [Recovering/Resolving]
  - Surgery [Unknown]
  - Hip fracture [Recovering/Resolving]
  - Femur fracture [Recovering/Resolving]
  - Muscular weakness [Unknown]
  - Bone disorder [Unknown]
  - Rheumatoid arthritis [Recovering/Resolving]
  - Influenza [Recovering/Resolving]
  - Injection site pain [Unknown]
  - Walking aid user [Unknown]
  - Fear of injection [Recovering/Resolving]

NARRATIVE: CASE EVENT DATE: 20231001
